FAERS Safety Report 9136137 (Version 1)
Quarter: 2013Q1

REPORT INFORMATION
  Report Type: Spontaneous
  Country: US (occurrence: US)
  Receive Date: 20130304
  Receipt Date: 20130304
  Transmission Date: 20140127
  Serious: Yes (Death)
  Sender: FDA-Public Use
  Company Number: US-GLAXOSMITHKLINE-A0980308A

PATIENT
  Age: 57 Year
  Sex: Female
  Weight: 63.6 kg

DRUGS (8)
  1. TYKERB [Suspect]
     Indication: PRODUCT USED FOR UNKNOWN INDICATION
     Dosage: 1000MG PER DAY
     Route: 048
  2. VICODIN [Concomitant]
  3. ZOMETA [Concomitant]
  4. LOVASTATIN [Concomitant]
  5. ATENOLOL [Concomitant]
  6. ACETAMINOPHEN [Concomitant]
  7. VITAMIN D [Concomitant]
  8. HERCEPTIN [Concomitant]

REACTIONS (4)
  - Death [Fatal]
  - Fatigue [Unknown]
  - Diarrhoea [Unknown]
  - Hospice care [Unknown]
